FAERS Safety Report 4697823-0 (Version None)
Quarter: 2005Q2

REPORT INFORMATION
  Report Type: 
  Country: None (occurrence: None)
  Receive Date: 20050621
  Receipt Date: 20050621
  Transmission Date: 20051028
  Serious: No
  Sender: FDA-Public Use
  Company Number: None

PATIENT
  Age: 40 Year
  Sex: Male
  Weight: 96 kg

DRUGS (3)
  1. SIMVASTATIN [Suspect]
     Indication: DYSLIPIDAEMIA
     Dosage: 80MG  DAILY   ORAL
     Route: 048
     Dates: start: 20050412, end: 20050426
  2. GEMFIBROZIL [Suspect]
     Dosage: 600MG   BID   ORAL
     Route: 048
  3. CYCLOSPORINE [Concomitant]

REACTIONS (1)
  - RHABDOMYOLYSIS [None]
